FAERS Safety Report 21994939 (Version 2)
Quarter: 2023Q1

REPORT INFORMATION
  Report Type: Report from Study
  Country: DE (occurrence: DE)
  Receive Date: 20230215
  Receipt Date: 20230310
  Transmission Date: 20230417
  Serious: Yes (Other)
  Sender: FDA-Public Use
  Company Number: DE-TAKEDA-2023TUS014657

PATIENT
  Age: 4 Year
  Sex: Male

DRUGS (8)
  1. TEDUGLUTIDE [Suspect]
     Active Substance: TEDUGLUTIDE
     Indication: Short-bowel syndrome
     Dosage: 0.750 MILLIGRAM, QD
     Route: 042
     Dates: start: 20220913
  2. TEDUGLUTIDE [Suspect]
     Active Substance: TEDUGLUTIDE
     Indication: Short-bowel syndrome
     Dosage: 0.750 MILLIGRAM, QD
     Route: 042
     Dates: start: 20220913
  3. TEDUGLUTIDE [Suspect]
     Active Substance: TEDUGLUTIDE
     Indication: Short-bowel syndrome
     Dosage: 0.750 MILLIGRAM, QD
     Route: 042
     Dates: start: 20220913
  4. TEDUGLUTIDE [Suspect]
     Active Substance: TEDUGLUTIDE
     Indication: Short-bowel syndrome
     Dosage: 0.750 MILLIGRAM, QD
     Route: 042
     Dates: start: 20220913
  5. ACETAMINOPHEN [Concomitant]
     Active Substance: ACETAMINOPHEN
     Indication: Coronavirus infection
     Dosage: UNK
     Route: 065
     Dates: start: 20220805
  6. LEVETIRACETAM [Concomitant]
     Active Substance: LEVETIRACETAM
     Indication: Seizure
     Dosage: 60 MILLIGRAM, BID
     Route: 048
     Dates: start: 20210920, end: 20210926
  7. LEVETIRACETAM [Concomitant]
     Active Substance: LEVETIRACETAM
     Dosage: 120 MILLIGRAM, BID
     Route: 048
     Dates: start: 20210927, end: 20211004
  8. LEVETIRACETAM [Concomitant]
     Active Substance: LEVETIRACETAM
     Dosage: 180 MILLIGRAM, BID
     Route: 048
     Dates: start: 20211005

REACTIONS (1)
  - Omphalitis [Recovered/Resolved]

NARRATIVE: CASE EVENT DATE: 20230120
